FAERS Safety Report 7644308-5 (Version None)
Quarter: 2011Q3

REPORT INFORMATION
  Report Type: 
  Country: None (occurrence: None)
  Receive Date: 20110729
  Receipt Date: 20110726
  Transmission Date: 20111222
  Serious: Yes (Death, Hospitalization, Other)
  Sender: FDA-Public Use
  Company Number: PHHY2011BR67547

PATIENT
  Sex: Female
  Weight: 58 kg

DRUGS (2)
  1. EXELON [Suspect]
     Dosage: 18MG/10CM2
     Route: 062
  2. SEROQUEL [Suspect]
     Indication: RELAXATION THERAPY
     Dosage: 1 DF, QD
     Route: 048

REACTIONS (5)
  - RENAL FAILURE [None]
  - VOMITING [None]
  - CONFUSIONAL STATE [None]
  - DIARRHOEA [None]
  - DEMENTIA ALZHEIMER'S TYPE [None]
